FAERS Safety Report 4651228-7 (Version None)
Quarter: 2005Q2

REPORT INFORMATION
  Report Type: 
  Country: None (occurrence: None)
  Receive Date: 20050503
  Receipt Date: 20050427
  Transmission Date: 20051028
  Serious: Yes (Other)
  Sender: FDA-Public Use
  Company Number: PHEH2005US04915

PATIENT
  Age: 57 Year
  Sex: Female

DRUGS (4)
  1. ZOMETA [Suspect]
     Indication: BREAST CANCER
     Dosage: 4 MG MONTHLY
  2. FASLODEX [Concomitant]
  3. DOXIL [Concomitant]
  4. CHEMOTHERAPEUTICS,OTHER [Concomitant]

REACTIONS (1)
  - ASEPTIC NECROSIS BONE [None]
